FAERS Safety Report 5694367-4 (Version None)
Quarter: 2008Q2

REPORT INFORMATION
  Report Type: 
  Country: None (occurrence: None)
  Receive Date: 20080404
  Receipt Date: 20080326
  Transmission Date: 20081010
  Serious: Yes (Other)
  Sender: FDA-Public Use
  Company Number: PT-JNJFOC-20080300518

PATIENT
  Age: 69 Year
  Sex: Female
  Weight: 80 kg

DRUGS (1)
  1. REMICADE [Suspect]
     Indication: PSORIASIS
     Dosage: ON WEEK 30 THE CYCLES WERE SHORTENED TO ^6/6 WEEKS^
     Route: 042

REACTIONS (2)
  - COLON CANCER [None]
  - PSORIASIS [None]
